FAERS Safety Report 7297266-X (Version None)
Quarter: 2011Q1

REPORT INFORMATION
  Report Type: 
  Country: None (occurrence: None)
  Receive Date: 20110216
  Receipt Date: 20110207
  Transmission Date: 20110831
  Serious: Yes (Hospitalization, Other)
  Sender: FDA-Public Use
  Company Number: FR-BAXTER-2011BH003310

PATIENT
  Age: 9 Year
  Sex: Male

DRUGS (4)
  1. ETOPOSIDE [Suspect]
     Indication: EWING'S SARCOMA
     Route: 042
     Dates: start: 20110122
  2. HOLOXAN BAXTER [Suspect]
     Indication: EWING'S SARCOMA
     Route: 042
     Dates: start: 20110122
  3. DOXORUBICIN GENERIC [Suspect]
     Indication: EWING'S SARCOMA
     Route: 042
     Dates: start: 20110122
  4. VINCRISTINE SULFATE [Suspect]
     Indication: EWING'S SARCOMA
     Route: 042
     Dates: start: 20110122

REACTIONS (2)
  - ELECTROLYTE IMBALANCE [None]
  - RENAL TUBULAR DISORDER [None]
